FAERS Safety Report 5734145-0 (Version None)
Quarter: 2008Q2

REPORT INFORMATION
  Report Type: 
  Country: None (occurrence: None)
  Receive Date: 20080509
  Receipt Date: 20080430
  Transmission Date: 20081010
  Serious: Yes (Congenital Anomaly, Other)
  Sender: FDA-Public Use
  Company Number: GB-ABBOTT-06P-167-0346878-00

PATIENT
  Sex: Female

DRUGS (1)
  1. VALPROIC ACID [Suspect]
     Indication: DRUG EXPOSURE DURING PREGNANCY
     Route: 064

REACTIONS (27)
  - ASOCIAL BEHAVIOUR [None]
  - COGNITIVE DISORDER [None]
  - CONGENITAL EYELID MALFORMATION [None]
  - CONGENITAL NOSE MALFORMATION [None]
  - COORDINATION ABNORMAL [None]
  - DEVELOPMENTAL DELAY [None]
  - DRUG EXPOSURE DURING PREGNANCY [None]
  - DYSMORPHISM [None]
  - EDUCATIONAL PROBLEM [None]
  - EMOTIONAL DISTRESS [None]
  - EXPRESSIVE LANGUAGE DISORDER [None]
  - FINGER DEFORMITY [None]
  - FOETAL ANTICONVULSANT SYNDROME [None]
  - FOETAL MOVEMENTS DECREASED [None]
  - FOOT DEFORMITY [None]
  - GAIT DISTURBANCE [None]
  - HYPERACUSIS [None]
  - LEARNING DISABILITY [None]
  - LIMB DEFORMITY [None]
  - MULTIPLE CONGENITAL ABNORMALITIES [None]
  - MYOPIA [None]
  - NEURODEVELOPMENTAL DISORDER [None]
  - OTITIS MEDIA [None]
  - PROMINENT EPICANTHAL FOLDS [None]
  - SPEECH DISORDER DEVELOPMENTAL [None]
  - STRABISMUS [None]
  - UNEVALUABLE EVENT [None]
